FAERS Safety Report 5411247-X (Version None)
Quarter: 2007Q3

REPORT INFORMATION
  Report Type: 
  Country: None (occurrence: None)
  Receive Date: 20070810
  Receipt Date: 20070810
  Transmission Date: 20080115
  Serious: Yes (Disabling)
  Sender: FDA-Public Use
  Company Number: D0053560A

PATIENT
  Age: 39 Year
  Sex: Female
  Weight: 100 kg

DRUGS (2)
  1. LAMICTAL [Suspect]
     Indication: EPILEPSY
     Dosage: 350MG PER DAY
     Route: 048
     Dates: start: 20030901, end: 20070801
  2. KEPPRA [Concomitant]
     Indication: EPILEPSY
     Dosage: 500MG TWICE PER DAY
     Route: 048
     Dates: start: 20030901, end: 20050901

REACTIONS (2)
  - POLYARTERITIS NODOSA [None]
  - RASH [None]
